FAERS Safety Report 22259249 (Version 1)
Quarter: 2023Q2

REPORT INFORMATION
  Report Type: Other
  Country: CR (occurrence: CR)
  Receive Date: 20230427
  Receipt Date: 20230427
  Transmission Date: 20230722
  Serious: Yes (Disabling, Other)
  Sender: FDA-Public Use
  Company Number: CR-DEXPHARM-20231000

PATIENT
  Age: 78 Year
  Sex: Male

DRUGS (5)
  1. OMEPRAZOLE [Interacting]
     Active Substance: OMEPRAZOLE
     Indication: Dyspepsia
  2. DIMENHYDRINATE [Interacting]
     Active Substance: DIMENHYDRINATE
     Indication: Nausea
     Dosage: 50MG EVERY 8 HOURS FOR 10 DAYS
  3. FLUOXETINE HYDROCHLORIDE [Interacting]
     Active Substance: FLUOXETINE HYDROCHLORIDE
     Indication: Depression
  4. HYDROXYUREA [Concomitant]
     Active Substance: HYDROXYUREA
  5. LOVASTATIN [Interacting]
     Active Substance: LOVASTATIN
     Indication: Hypercholesterolaemia

REACTIONS (2)
  - Drug interaction [Recovered/Resolved]
  - Cholinergic syndrome [Recovering/Resolving]
